FAERS Safety Report 11318832 (Version 1)
Quarter: 2015Q3

REPORT INFORMATION
  Report Type: Spontaneous
  Country: TN (occurrence: TN)
  Receive Date: 20150729
  Receipt Date: 20150729
  Transmission Date: 20151125
  Serious: Yes (Hospitalization, Other)
  Sender: FDA-Public Use
  Company Number: TN-009507513-1504TUN021133

PATIENT
  Age: 50 Year
  Sex: Male

DRUGS (2)
  1. REMIFENTANIL HYDROCHLORIDE [Concomitant]
     Active Substance: REMIFENTANIL HYDROCHLORIDE
     Dosage: UNK
     Dates: start: 20150421, end: 20150421
  2. ESMERON [Suspect]
     Active Substance: ROCURONIUM BROMIDE
     Indication: GENERAL ANAESTHESIA
     Dosage: 0.6 MG/KG, ONCE
     Route: 065
     Dates: start: 20150421, end: 20150421

REACTIONS (2)
  - Drug effect prolonged [Recovered/Resolved]
  - Endotracheal intubation complication [Recovered/Resolved]

NARRATIVE: CASE EVENT DATE: 20150421
